FAERS Safety Report 6413141-4 (Version None)
Quarter: 2009Q4

REPORT INFORMATION
  Report Type: 
  Country: None (occurrence: None)
  Receive Date: 20091022
  Receipt Date: 20091022
  Transmission Date: 20100525
  Serious: Yes (Other)
  Sender: FDA-Public Use
  Company Number: None

PATIENT
  Sex: Female
  Weight: 63.5036 kg

DRUGS (1)
  1. LACTIC ACID 10% E CREAM 11343 M 3266732-02994 [Suspect]
     Dosage: APPLY TO AFFECTED AREA TWICE DAILY 113.4

REACTIONS (5)
  - APPLICATION SITE ERYTHEMA [None]
  - APPLICATION SITE PAIN [None]
  - ARTHRALGIA [None]
  - SKIN DISCOLOURATION [None]
  - TENDON PAIN [None]
